FAERS Safety Report 6079462-2 (Version None)
Quarter: 2009Q1

REPORT INFORMATION
  Report Type: 
  Country: None (occurrence: None)
  Receive Date: 20090216
  Receipt Date: 20090213
  Transmission Date: 20090719
  Serious: Yes (Life-Threatening)
  Sender: FDA-Public Use
  Company Number: US-ASTRAZENECA-2009UW04174

PATIENT
  Age: 42 Year
  Sex: Male
  Weight: 147 kg

DRUGS (4)
  1. ATACAND HCT [Suspect]
     Indication: HYPERTENSION
     Dosage: 16/12.5 MG ONCE DAILY
     Route: 048
     Dates: start: 20081201, end: 20090131
  2. ATACAND HCT [Suspect]
     Dosage: 16/12.5 MG ONCE DAILY
     Route: 048
     Dates: start: 20090207
  3. ACTOS [Concomitant]
     Indication: WEIGHT DECREASED
     Route: 048
     Dates: end: 20090207
  4. METFORMIN HCL [Concomitant]
     Indication: DIABETES MELLITUS
     Route: 048

REACTIONS (3)
  - BLOOD PRESSURE INCREASED [None]
  - CHEST PAIN [None]
  - PAIN IN EXTREMITY [None]
